FAERS Safety Report 10228840 (Version 1)
Quarter: 2014Q2

REPORT INFORMATION
  Report Type: Spontaneous
  Country: US (occurrence: US)
  Receive Date: 20140610
  Receipt Date: 20140610
  Transmission Date: 20141212
  Serious: Yes (Other)
  Sender: FDA-Public Use
  Company Number: US-GILEAD-2014-0104554

PATIENT
  Sex: Male

DRUGS (3)
  1. SOVALDI [Suspect]
     Indication: HEPATITIS C
     Dosage: UNK
     Route: 065
  2. PEG                                /01543001/ [Concomitant]
  3. RIBAVIRIN [Concomitant]

REACTIONS (2)
  - Hepatitis C [Unknown]
  - Drug ineffective [Unknown]
